FAERS Safety Report 16973341 (Version 1)
Quarter: 2019Q4

REPORT INFORMATION
  Report Type: Spontaneous
  Country: DE (occurrence: DE)
  Receive Date: 20191030
  Receipt Date: 20191030
  Transmission Date: 20200122
  Serious: Yes (Other)
  Sender: FDA-Public Use
  Company Number: DE-TEVA-2019-DE-1129161

PATIENT
  Age: 51 Year
  Sex: Female
  Weight: 95 kg

DRUGS (1)
  1. CARBAMAZEPIN [Suspect]
     Active Substance: CARBAMAZEPINE
     Indication: TRIGEMINAL NEURALGIA
     Dosage: 2 TABLETS DAILY
     Route: 048
     Dates: start: 20180128, end: 20190301

REACTIONS (3)
  - Autoimmune hepatitis [Recovered/Resolved with Sequelae]
  - Liver function test increased [Not Recovered/Not Resolved]
  - Drug reaction with eosinophilia and systemic symptoms [Recovered/Resolved]

NARRATIVE: CASE EVENT DATE: 20190308
